FAERS Safety Report 11556485 (Version 1)
Quarter: 2015Q3

REPORT INFORMATION
  Report Type: Spontaneous
  Country: US (occurrence: US)
  Receive Date: 20150916
  Receipt Date: 20150916
  Transmission Date: 20151125
  Serious: No
  Sender: FDA-Public Use
  Company Number: US-ELI_LILLY_AND_COMPANY-US200805006292

PATIENT
  Sex: Female

DRUGS (5)
  1. MOBIC [Concomitant]
     Active Substance: MELOXICAM
  2. AMODEX [Concomitant]
  3. LABETALOL [Concomitant]
     Active Substance: LABETALOL\LABETALOL HYDROCHLORIDE
  4. FORTEO [Suspect]
     Active Substance: TERIPARATIDE
  5. DITROPAN /00538901/ [Concomitant]

REACTIONS (1)
  - Back pain [Not Recovered/Not Resolved]

NARRATIVE: CASE EVENT DATE: 200805
